FAERS Safety Report 19703409 (Version 1)
Quarter: 2021Q3

REPORT INFORMATION
  Report Type: Spontaneous
  Country: US (occurrence: US)
  Receive Date: 20210816
  Receipt Date: 20210816
  Transmission Date: 20211014
  Serious: No
  Sender: FDA-Public Use
  Company Number: US-JNJFOC-20210819873

PATIENT
  Sex: Male

DRUGS (8)
  1. COVID?19 VACCINE [Concomitant]
     Dosage: 2ND DOSE
     Route: 065
     Dates: start: 20210701, end: 20210701
  2. TYLENOL [Suspect]
     Active Substance: ACETAMINOPHEN
     Indication: MIGRAINE
     Dosage: 600?1000 MG
     Route: 065
     Dates: start: 202106
  3. IBUPROFEN. [Suspect]
     Active Substance: IBUPROFEN
     Indication: MIGRAINE
     Route: 065
     Dates: start: 202106
  4. TOPAMAC [Concomitant]
     Active Substance: TOPIRAMATE
     Dosage: 3RD WEEK
     Route: 065
  5. TOPAMAC [Concomitant]
     Active Substance: TOPIRAMATE
     Dosage: 4TH WEEK
     Route: 065
  6. COVID?19 VACCINE [Concomitant]
     Indication: IMMUNISATION
     Dosage: 1ST DOSE
     Route: 065
     Dates: start: 20210610, end: 20210610
  7. TOPAMAC [Concomitant]
     Active Substance: TOPIRAMATE
     Indication: MIGRAINE
     Dosage: 1ST WEEK
     Route: 065
  8. TOPAMAC [Concomitant]
     Active Substance: TOPIRAMATE
     Dosage: 2ND WEEK
     Route: 065

REACTIONS (1)
  - Product use in unapproved indication [Unknown]

NARRATIVE: CASE EVENT DATE: 202106
